FAERS Safety Report 23975082 (Version 1)
Quarter: 2024Q2

REPORT INFORMATION
  Report Type: Spontaneous
  Country: US (occurrence: US)
  Receive Date: 20240614
  Receipt Date: 20240614
  Transmission Date: 20240715
  Serious: Yes (Hospitalization, Other)
  Sender: FDA-Public Use
  Company Number: US-MELINTA THERAPEUTICS, LLC-US-MLNT-24-00295

PATIENT

DRUGS (3)
  1. ORITAVANCIN [Suspect]
     Active Substance: ORITAVANCIN
     Indication: Wound infection
     Dosage: UNK
     Route: 041
     Dates: start: 20230926, end: 20230926
  2. VANCOMYCIN [Suspect]
     Active Substance: VANCOMYCIN
     Indication: Wound infection
     Dosage: UNK
     Dates: start: 20230919
  3. CEFEPIME [Concomitant]
     Active Substance: CEFEPIME HYDROCHLORIDE
     Indication: Wound infection
     Dosage: UNK
     Dates: start: 20230919

REACTIONS (4)
  - Toxic epidermal necrolysis [Recovered/Resolved]
  - Acute kidney injury [Unknown]
  - Metabolic acidosis [Unknown]
  - Insurance issue [Unknown]

NARRATIVE: CASE EVENT DATE: 20230901
